FAERS Safety Report 14588414 (Version 2)
Quarter: 2018Q1

REPORT INFORMATION
  Report Type: Report from Study
  Country: AE (occurrence: AE)
  Receive Date: 20180301
  Receipt Date: 20180330
  Transmission Date: 20180509
  Serious: Yes (Other)
  Sender: FDA-Public Use
  Company Number: PHHY2018AE008097

PATIENT
  Age: 48 Year
  Sex: Female

DRUGS (1)
  1. GILENYA [Suspect]
     Active Substance: FINGOLIMOD HYDROCHLORIDE
     Indication: MULTIPLE SCLEROSIS
     Dosage: 0.5 MG, QD
     Route: 048
     Dates: start: 2011

REACTIONS (8)
  - Pulmonary oedema [Unknown]
  - Myositis [Recovering/Resolving]
  - Dyspnoea [Recovered/Resolved]
  - Influenza [Recovering/Resolving]
  - Pyrexia [Recovering/Resolving]
  - Lymphocyte count decreased [Unknown]
  - Anxiety [Not Recovered/Not Resolved]
  - Muscular weakness [Recovering/Resolving]

NARRATIVE: CASE EVENT DATE: 2016
